FAERS Safety Report 19044181 (Version 1)
Quarter: 2021Q1

REPORT INFORMATION
  Report Type: Report from Study
  Country: US (occurrence: US)
  Receive Date: 20210323
  Receipt Date: 20210323
  Transmission Date: 20210420
  Serious: Yes (Other)
  Sender: FDA-Public Use
  Company Number: US-TAKEDA-2020TUS061498

PATIENT
  Sex: Female

DRUGS (3)
  1. PONATINIB [Suspect]
     Active Substance: PONATINIB
     Indication: CHRONIC MYELOID LEUKAEMIA
     Dosage: 30 MILLIGRAM, QD
     Route: 048
     Dates: start: 202012
  2. TYLENOL [Concomitant]
     Active Substance: ACETAMINOPHEN
     Dosage: UNK
     Route: 065
  3. PONATINIB [Suspect]
     Active Substance: PONATINIB
     Dosage: 15 MILLIGRAM, QD
     Route: 048

REACTIONS (14)
  - Systemic lupus erythematosus [Unknown]
  - Rash [Unknown]
  - Nausea [Unknown]
  - Eructation [Not Recovered/Not Resolved]
  - Dyspepsia [Unknown]
  - Insomnia [Unknown]
  - Constipation [Unknown]
  - Pigmentation disorder [Unknown]
  - Abdominal pain upper [Unknown]
  - Blood pressure increased [Unknown]
  - Flatulence [Unknown]
  - Gastrooesophageal reflux disease [Not Recovered/Not Resolved]
  - Skin lesion [Unknown]
  - Abdominal distension [Unknown]
